FAERS Safety Report 8430367-9 (Version None)
Quarter: 2012Q2

REPORT INFORMATION
  Report Type: 
  Country: None (occurrence: None)
  Receive Date: 20120606
  Receipt Date: 20120606
  Transmission Date: 20120825
  Serious: Yes (Hospitalization)
  Sender: FDA-Public Use
  Company Number: None

PATIENT
  Age: 71 Year
  Sex: Male
  Weight: 50 kg

DRUGS (1)
  1. DABIGATRAN [Suspect]
     Indication: TRANSIENT ISCHAEMIC ATTACK
     Dosage: MG BID PO
     Route: 048
     Dates: start: 20120504, end: 20120601

REACTIONS (2)
  - DRUG INEFFECTIVE [None]
  - TRANSIENT ISCHAEMIC ATTACK [None]
